FAERS Safety Report 16748483 (Version 1)
Quarter: 2019Q3

REPORT INFORMATION
  Report Type: Spontaneous
  Country: US (occurrence: US)
  Receive Date: 20190828
  Receipt Date: 20190828
  Transmission Date: 20191005
  Serious: Yes (Other)
  Sender: FDA-Public Use
  Company Number: US-BEH-2019106105

PATIENT
  Sex: Female

DRUGS (2)
  1. HIZENTRA [Suspect]
     Active Substance: HUMAN IMMUNOGLOBULIN G
     Dosage: UNK
     Route: 058
  2. HIZENTRA [Suspect]
     Active Substance: HUMAN IMMUNOGLOBULIN G
     Indication: HYPOGAMMAGLOBULINAEMIA
     Dosage: 27 GRAM, 6 SITES, QOW
     Route: 058
     Dates: start: 201608

REACTIONS (3)
  - Systemic lupus erythematosus [Recovered/Resolved]
  - Fatigue [Recovered/Resolved]
  - Fibromyalgia [Recovered/Resolved]
